FAERS Safety Report 7676568-9 (Version None)
Quarter: 2011Q3

REPORT INFORMATION
  Report Type: 
  Country: None (occurrence: None)
  Receive Date: 20110805
  Receipt Date: 20110720
  Transmission Date: 20111222
  Serious: Yes (Hospitalization)
  Sender: FDA-Public Use
  Company Number: 2011DE0135

PATIENT
  Age: 45 Year
  Sex: Female

DRUGS (7)
  1. PHENPROCOUMON (PHENPROCOUMON) [Concomitant]
  2. RAMIPRIL [Concomitant]
  3. KINERET [Suspect]
     Indication: JUVENILE ARTHRITIS
     Dosage: 100 MG (100 MG, 1 IN 1 D)
     Dates: start: 20110403, end: 20110527
  4. HYDROCHLORTIAZIDE (HYDROCHLORTIAZIDE) [Concomitant]
  5. PENTALONE [Concomitant]
  6. TORASEMID (TORASEMID) [Concomitant]
  7. BISOPROLOL FUMARATE [Concomitant]

REACTIONS (2)
  - EOSINOPHILIA [None]
  - LYMPHADENOPATHY [None]
